FAERS Safety Report 24857644 (Version 1)
Quarter: 2025Q1

REPORT INFORMATION
  Report Type: Spontaneous
  Country: US (occurrence: US)
  Receive Date: 20250117
  Receipt Date: 20250117
  Transmission Date: 20250408
  Serious: No
  Sender: AMGEN
  Company Number: US-AMGEN-USASP2025008398

PATIENT
  Age: 15 Year
  Sex: Male

DRUGS (7)
  1. BEVACIZUMAB [Suspect]
     Active Substance: BEVACIZUMAB
     Indication: Glaucoma
  2. DORZOLAMIDE\TIMOLOL [Concomitant]
     Active Substance: DORZOLAMIDE\TIMOLOL
     Indication: Glaucoma
     Dosage: UNK, BID (IN THE RIGHT EYE)
     Route: 061
  3. ACETAZOLAMIDE [Concomitant]
     Active Substance: ACETAZOLAMIDE
     Indication: Glaucoma
     Dosage: 500 MILLIGRAM, BID (IN THE RIGHT EYE)
     Route: 065
  4. PREDNISOLONE ACETATE [Concomitant]
     Active Substance: PREDNISOLONE ACETATE
     Indication: Glaucoma
  5. PREDNISOLONE ACETATE [Concomitant]
     Active Substance: PREDNISOLONE ACETATE
  6. CYCLOPENTOLATE [Concomitant]
     Active Substance: CYCLOPENTOLATE
     Indication: Glaucoma
     Dosage: 1 PERCENT, BID (IN THE RIGHT EYE)
  7. NETARSUDIL [Concomitant]
     Active Substance: NETARSUDIL
     Indication: Exudative retinopathy
     Dosage: 0.02 PERCENT, BID (IN THE RIGHT EYE)

REACTIONS (3)
  - Drug ineffective for unapproved indication [Unknown]
  - Intraocular pressure increased [Recovered/Resolved]
  - Off label use [Unknown]
